FAERS Safety Report 7058638-1 (Version None)
Quarter: 2010Q4

REPORT INFORMATION
  Report Type: 
  Country: None (occurrence: None)
  Receive Date: 20101022
  Receipt Date: 20101008
  Transmission Date: 20110411
  Serious: Yes (Death)
  Sender: FDA-Public Use
  Company Number: B0680512A

PATIENT
  Age: 46 Year
  Sex: Male
  Weight: 80.5 kg

DRUGS (3)
  1. SELZENTRY [Suspect]
     Indication: HIV INFECTION
     Route: 048
     Dates: start: 20100204, end: 20100901
  2. INTELENCE [Concomitant]
     Route: 048
     Dates: start: 20100204, end: 20100901
  3. ISENTRESS [Concomitant]
     Route: 048
     Dates: start: 20100204, end: 20100901

REACTIONS (1)
  - DEATH [None]
